FAERS Safety Report 7423034-1 (Version None)
Quarter: 2011Q2

REPORT INFORMATION
  Report Type: 
  Country: None (occurrence: None)
  Receive Date: 20110411
  Receipt Date: 20110330
  Transmission Date: 20111010
  Serious: Yes (Other)
  Sender: FDA-Public Use
  Company Number: BR-001632

PATIENT
  Age: 8 Year
  Sex: Female

DRUGS (1)
  1. NAGLAZYME [Suspect]
     Indication: MUCOPOLYSACCHARIDOSIS VI
     Dosage: INTRAVENOUS DRIP
     Route: 041

REACTIONS (6)
  - SPINAL CORD COMPRESSION [None]
  - GAIT DISTURBANCE [None]
  - RADICULAR PAIN [None]
  - MOVEMENT DISORDER [None]
  - FALL [None]
  - DYSSTASIA [None]
